FAERS Safety Report 24376811 (Version 1)
Quarter: 2024Q3

REPORT INFORMATION
  Report Type: Report from Study
  Country: IE (occurrence: IE)
  Receive Date: 20240930
  Receipt Date: 20240930
  Transmission Date: 20241016
  Serious: Yes (Other)
  Sender: ROCHE
  Company Number: IE-ROCHE-3535819

PATIENT
  Sex: Male

DRUGS (1)
  1. OCREVUS [Suspect]
     Active Substance: OCRELIZUMAB
     Indication: Multiple sclerosis
     Route: 042

REACTIONS (5)
  - Fatigue [Unknown]
  - Mobility decreased [Unknown]
  - Nasopharyngitis [Recovered/Resolved]
  - Optic neuritis [Recovering/Resolving]
  - Influenza [Recovered/Resolved]
